FAERS Safety Report 5966817-7 (Version None)
Quarter: 2008Q4

REPORT INFORMATION
  Report Type: 
  Country: None (occurrence: None)
  Receive Date: 20081125
  Receipt Date: 20081118
  Transmission Date: 20090506
  Serious: Yes (Hospitalization)
  Sender: FDA-Public Use
  Company Number: US-B.I. PHARMACEUTICALS,INC./RIDGEFIELD-2008-BP-17476BP

PATIENT
  Sex: Female

DRUGS (3)
  1. SPIRIVA [Suspect]
     Indication: CHRONIC OBSTRUCTIVE PULMONARY DISEASE
     Dosage: 18MCG
     Route: 055
     Dates: start: 20080502
  2. ANTIBIOTICS [Concomitant]
     Indication: ORAL CANDIDIASIS
  3. OASIS MOUTHWASH [Concomitant]
     Indication: DRY MOUTH

REACTIONS (6)
  - CARDIAC MYXOMA [None]
  - DRY MOUTH [None]
  - DRY THROAT [None]
  - ORAL CANDIDIASIS [None]
  - OROPHARYNGEAL BLISTERING [None]
  - TONGUE BLISTERING [None]
